FAERS Safety Report 4263111-X (Version None)
Quarter: 2004Q1

REPORT INFORMATION
  Report Type: 
  Country: None (occurrence: None)
  Receive Date: 20040105
  Receipt Date: 20031204
  Transmission Date: 20041129
  Serious: Yes (Death)
  Sender: FDA-Public Use
  Company Number: 200320288US

PATIENT
  Age: 79 Year
  Sex: Female

DRUGS (2)
  1. LOVENOX [Suspect]
     Dates: start: 20031123, end: 20031128
  2. COUMADIN [Concomitant]
     Dosage: DOSE: UNK

REACTIONS (3)
  - EXSANGUINATION [None]
  - HAEMATOMA [None]
  - INJURY [None]
